FAERS Safety Report 18664343 (Version 1)
Quarter: 2020Q4

REPORT INFORMATION
  Report Type: Spontaneous
  Country: ES (occurrence: ES)
  Receive Date: 20201225
  Receipt Date: 20201225
  Transmission Date: 20210114
  Serious: Yes (Hospitalization)
  Sender: FDA-Public Use
  Company Number: ES-ACCORD-212173

PATIENT
  Age: 85 Year
  Sex: Male

DRUGS (5)
  1. ATORVASTATIN [Concomitant]
     Active Substance: ATORVASTATIN
     Indication: PROPHYLAXIS
     Route: 048
     Dates: start: 20201120
  2. ACETYLSALICYLIC ACID [Concomitant]
     Active Substance: ASPIRIN
     Route: 048
     Dates: start: 20201119, end: 20201119
  3. CLOPIDOGREL [Suspect]
     Active Substance: CLOPIDOGREL BISULFATE
     Indication: DRUG DELIVERY DEVICE PLACEMENT
     Route: 048
     Dates: start: 20201120
  4. ACETYLSALICYLIC ACID [Interacting]
     Active Substance: ASPIRIN
     Indication: DRUG DELIVERY DEVICE PLACEMENT
     Route: 048
     Dates: start: 20201119
  5. ENOXAPARIN [Interacting]
     Active Substance: ENOXAPARIN
     Indication: PULMONARY ARTERY THROMBOSIS
     Route: 058
     Dates: start: 20201119, end: 20201124

REACTIONS (3)
  - Paraesthesia [Recovered/Resolved]
  - Drug interaction [Unknown]
  - Catheter site haematoma [Recovering/Resolving]

NARRATIVE: CASE EVENT DATE: 20201121
